FAERS Safety Report 7303928-8 (Version None)
Quarter: 2011Q1

REPORT INFORMATION
  Report Type: 
  Country: None (occurrence: None)
  Receive Date: 20110221
  Receipt Date: 20110214
  Transmission Date: 20110831
  Serious: Yes (Death)
  Sender: FDA-Public Use
  Company Number: IN-ROCHE-759454

PATIENT

DRUGS (6)
  1. CEFTRIAXONE [Concomitant]
  2. HYDROCORTISONE [Concomitant]
  3. IMIPENEM AND CILASTATIN SODIUM [Concomitant]
  4. PIPERACILLIN [Concomitant]
     Dosage: DRUG NAME: PIPERACILLIN/TAZOBACTAM SODIUM
  5. OSELTAMIVIR [Suspect]
     Indication: H1N1 INFLUENZA
     Route: 065
  6. METHYLPREDNISOLONE [Concomitant]

REACTIONS (3)
  - MULTI-ORGAN FAILURE [None]
  - ACUTE RESPIRATORY DISTRESS SYNDROME [None]
  - PATHOGEN RESISTANCE [None]
